FAERS Safety Report 9796460 (Version 2)
Quarter: 2014Q1

REPORT INFORMATION
  Report Type: Spontaneous
  Country: DE (occurrence: DE)
  Receive Date: 20140103
  Receipt Date: 20140228
  Transmission Date: 20141002
  Serious: Yes (Hospitalization)
  Sender: FDA-Public Use
  Company Number: DE-TEVA-453897USA

PATIENT
  Age: 79 Year
  Sex: Male
  Weight: 88 kg

DRUGS (15)
  1. BENDAMUSTINE [Suspect]
     Indication: CHRONIC LYMPHOCYTIC LEUKAEMIA
     Dosage: UNKNOWN/D
     Dates: start: 20131011
  2. BENDAMUSTINE [Suspect]
     Dosage: UNKNOWN/D
     Dates: start: 20131012
  3. BENDAMUSTINE [Suspect]
     Dosage: UNKNOWN/D
     Dates: start: 20130913
  4. BENDAMUSTINE [Suspect]
     Dosage: UNKNOWN/D
     Dates: start: 20130914
  5. BENDAMUSTINE [Suspect]
     Dosage: UNKNOWN/D
     Dates: start: 20131108
  6. BENDAMUSTINE [Suspect]
     Dosage: UNKNOWN/D
     Dates: start: 20131109
  7. RITUXIMAB [Suspect]
     Indication: CHRONIC LYMPHOCYTIC LEUKAEMIA
     Dosage: UNKNOWN/D
     Dates: start: 20130912
  8. RITUXIMAB [Suspect]
     Dosage: UNKNOWN/D
     Dates: start: 20131010
  9. RITUXIMAB [Suspect]
     Dosage: UNKNOWN/D
     Dates: start: 20131107
  10. SULFAMETHOXAZOLE W/TRIMETHOPRIM [Concomitant]
     Indication: PROPHYLAXIS
     Dosage: ON SATURDAY/SUNDAY
     Route: 048
  11. ALLOPURINOL [Concomitant]
     Indication: HYPERURICAEMIA
     Route: 048
     Dates: start: 20130912, end: 20131109
  12. SIMVASTATIN [Concomitant]
     Indication: PRODUCT USED FOR UNKNOWN INDICATION
     Route: 048
     Dates: start: 20130912, end: 20131109
  13. BISOPROLOL [Concomitant]
     Indication: HYPERTENSION
     Route: 048
     Dates: start: 20130912, end: 20131109
  14. COTRIM FORTE [Concomitant]
     Indication: PROPHYLAXIS
     Route: 048
     Dates: start: 201309, end: 201312
  15. FOLSAN [Concomitant]
     Indication: PRODUCT USED FOR UNKNOWN INDICATION
     Route: 048

REACTIONS (1)
  - Polyneuropathy [Recovering/Resolving]
